FAERS Safety Report 12755809 (Version 1)
Quarter: 2016Q3

REPORT INFORMATION
  Report Type: Report from Study
  Country: JP (occurrence: JP)
  Receive Date: 20160916
  Receipt Date: 20160916
  Transmission Date: 20161109
  Serious: Yes (Other)
  Sender: FDA-Public Use
  Company Number: JP-JT-EVA201602041KERYXP-001

PATIENT
  Age: 33 Year
  Sex: Male
  Weight: 50 kg

DRUGS (13)
  1. CALTAN [Concomitant]
     Active Substance: CALCIUM CARBONATE
     Indication: HYPERPHOSPHATAEMIA
     Dosage: 1500 MG, QD
     Route: 048
     Dates: start: 20151209
  2. EPOETIN BETA RECOMBINANT [Concomitant]
     Dosage: 1500 IU, UNK
     Route: 042
  3. PERSANTINE [Concomitant]
     Active Substance: DIPYRIDAMOLE
     Indication: LUPUS NEPHRITIS
     Dosage: 300 MG, QD
     Route: 048
  4. DEPAS [Concomitant]
     Active Substance: ETIZOLAM
     Dosage: 0.5 MG, QD
     Route: 048
  5. BLOPRESS [Concomitant]
     Active Substance: CANDESARTAN CILEXETIL
     Dosage: 2 MG, QD
     Route: 048
     Dates: start: 20151209
  6. LANSOPRAZOLE. [Concomitant]
     Active Substance: LANSOPRAZOLE
     Indication: HYPERCHLORHYDRIA
     Dosage: 15 MG, QD
     Route: 048
  7. DIART [Concomitant]
     Active Substance: AZOSEMIDE
     Indication: LUPUS NEPHRITIS
     Dosage: 30 MG, QD
     Route: 048
  8. MARZULENE-S [Concomitant]
     Active Substance: SODIUM GUALENATE
     Dosage: 2 G, QD
     Route: 048
  9. PREDNISOLONE. [Concomitant]
     Active Substance: PREDNISOLONE
     Indication: LUPUS NEPHRITIS
     Dosage: 9 MG, QD
     Route: 048
  10. RIONA [Suspect]
     Active Substance: FERRIC CITRATE ANHYDROUS
     Indication: HYPERPHOSPHATAEMIA
     Dosage: 1500 MG, QD
     Route: 048
     Dates: start: 20160120
  11. EPOETIN BETA RECOMBINANT [Concomitant]
     Indication: NEPHROGENIC ANAEMIA
     Dosage: 750 IU, UNK
     Route: 042
  12. PROGRAF [Concomitant]
     Active Substance: TACROLIMUS\TACROLIMUS ANHYDROUS
     Indication: LUPUS NEPHRITIS
     Dosage: 2 MG, QD
     Route: 048
  13. GASLON [Concomitant]
     Active Substance: IRSOGLADINE MALEATE
     Dosage: 4 MG, QD
     Route: 048

REACTIONS (1)
  - Epilepsy [Recovering/Resolving]

NARRATIVE: CASE EVENT DATE: 20160316
